FAERS Safety Report 15746898 (Version 3)
Quarter: 2019Q1

REPORT INFORMATION
  Report Type: Spontaneous
  Country: US (occurrence: US)
  Receive Date: 20181220
  Receipt Date: 20190306
  Transmission Date: 20190417
  Serious: Yes (Hospitalization)
  Sender: FDA-Public Use
  Company Number: US-VERTEX PHARMACEUTICALS-2018-009740

PATIENT
  Age: 35 Year
  Sex: Male

DRUGS (20)
  1. SYMDEKO [Suspect]
     Active Substance: IVACAFTOR\TEZACAFTOR
     Indication: CYSTIC FIBROSIS
     Dosage: 100MG TEZACAFTOR/150MG IVACAFTOR; AM 150MG IVACAFTOR PM
     Route: 048
     Dates: start: 20180821
  2. PULMOZYME [Concomitant]
     Active Substance: DORNASE ALFA
  3. CIPROFLOXACIN. [Concomitant]
     Active Substance: CIPROFLOXACIN
  4. FEROSUL [Concomitant]
  5. PROMETHAZINE [Concomitant]
     Active Substance: PROMETHAZINE\PROMETHAZINE HYDROCHLORIDE
  6. DIAZEPAM. [Concomitant]
     Active Substance: DIAZEPAM
  7. CAYSTON [Concomitant]
     Active Substance: AZTREONAM
  8. ALPRAZOLAM. [Concomitant]
     Active Substance: ALPRAZOLAM
  9. FLUTICASONE. [Concomitant]
     Active Substance: FLUTICASONE
  10. VENLAFAXINE [Concomitant]
     Active Substance: VENLAFAXINE HYDROCHLORIDE
  11. OMEPRAZOLE. [Concomitant]
     Active Substance: OMEPRAZOLE
  12. SMZ-TMP [Concomitant]
     Active Substance: SULFAMETHOXAZOLE\TRIMETHOPRIM
  13. OXYCODONE WITH APAP [Concomitant]
     Active Substance: ACETAMINOPHEN\OXYCODONE HYDROCHLORIDE
  14. TOBRAMYCIN. [Concomitant]
     Active Substance: TOBRAMYCIN
  15. HYDROMORPHONE [Concomitant]
     Active Substance: HYDROMORPHONE
  16. AZITHROMYCIN ANHYDROUS. [Concomitant]
     Active Substance: AZITHROMYCIN ANHYDROUS
  17. TRAMADOL. [Concomitant]
     Active Substance: TRAMADOL
  18. BUSPIRONE [Concomitant]
     Active Substance: BUSPIRONE HYDROCHLORIDE
  19. MIRTAZAPINE. [Concomitant]
     Active Substance: MIRTAZAPINE
  20. QUETIAPINE. [Concomitant]
     Active Substance: QUETIAPINE

REACTIONS (1)
  - Infective pulmonary exacerbation of cystic fibrosis [Not Recovered/Not Resolved]

NARRATIVE: CASE EVENT DATE: 201812
